FAERS Safety Report 4915206-2 (Version None)
Quarter: 2006Q1

REPORT INFORMATION
  Report Type: 
  Country: None (occurrence: None)
  Receive Date: 20060215
  Receipt Date: 20060215
  Transmission Date: 20060701
  Serious: Yes (Other)
  Sender: FDA-Public Use
  Company Number: None

PATIENT
  Sex: Male
  Weight: 79 kg

DRUGS (1)
  1. TAXOL [Suspect]
     Dosage: 50 ML
     Dates: start: 20060213, end: 20060213

REACTIONS (5)
  - CHEST DISCOMFORT [None]
  - DYSPNOEA [None]
  - HALLUCINATION, VISUAL [None]
  - HYPERHIDROSIS [None]
  - SWELLING FACE [None]
